FAERS Safety Report 6967607-9 (Version None)
Quarter: 2010Q3

REPORT INFORMATION
  Report Type: 
  Country: None (occurrence: None)
  Receive Date: 20100901
  Receipt Date: 20100818
  Transmission Date: 20110219
  Serious: Yes (Other)
  Sender: FDA-Public Use
  Company Number: 1000015839

PATIENT
  Age: 25 Year
  Sex: Female

DRUGS (2)
  1. CITALOPRAM HYDROBROMIDE [Suspect]
     Indication: ANXIETY
     Dosage: (40 MG, 1 IN 1 D), ORAL
     Route: 048
     Dates: start: 20100501, end: 20100714
  2. OLANZAPINE [Suspect]
     Indication: ANXIETY
     Dosage: 5 MG (5 MG, 1 IN 1 D) ,ORAL
     Route: 048
     Dates: start: 20100501, end: 20100714

REACTIONS (2)
  - OBSESSIVE THOUGHTS [None]
  - SELF-INJURIOUS IDEATION [None]
